FAERS Safety Report 17140919 (Version 2)
Quarter: 2020Q1

REPORT INFORMATION
  Report Type: Spontaneous
  Country: GB (occurrence: GB)
  Receive Date: 20191211
  Receipt Date: 20200302
  Transmission Date: 20200409
  Serious: Yes (Other)
  Sender: FDA-Public Use
  Company Number: GB-PFIZER INC-2019527938

PATIENT
  Sex: Female

DRUGS (2)
  1. BAVENCIO [Suspect]
     Active Substance: AVELUMAB
     Dosage: UNK, CYCLIC
  2. AXITINIB [Suspect]
     Active Substance: AXITINIB
     Dosage: UNK, CYCLIC

REACTIONS (2)
  - Sciatica [Recovered/Resolved]
  - Blood pressure increased [Recovered/Resolved]
